FAERS Safety Report 9713655 (Version 1)
Quarter: 2013Q4

REPORT INFORMATION
  Report Type: Report from Study
  Country: NL (occurrence: NL)
  Receive Date: 20131126
  Receipt Date: 20131126
  Transmission Date: 20140711
  Serious: Yes (Disabling)
  Sender: FDA-Public Use
  Company Number: NL-MYLANLABS-2013S1026021

PATIENT
  Sex: Female

DRUGS (2)
  1. RISEDRONIC ACID [Suspect]
     Route: 065
  2. PANTOPRAZOLE [Suspect]
     Route: 065

REACTIONS (2)
  - Vision blurred [Unknown]
  - Visual acuity reduced [Unknown]
